FAERS Safety Report 22209075 (Version 1)
Quarter: 2023Q2

REPORT INFORMATION
  Report Type: Spontaneous
  Country: None (occurrence: RU)
  Receive Date: 20230413
  Receipt Date: 20230413
  Transmission Date: 20230721
  Serious: Yes (Other)
  Sender: FDA-Public Use
  Company Number: RU-B.Braun Medical Inc.-2140308

PATIENT
  Age: 7 Year
  Sex: Male
  Weight: 27 kg

DRUGS (4)
  1. SODIUM CHLORIDE [Suspect]
     Active Substance: SODIUM CHLORIDE
     Route: 042
  2. URSODIOL [Concomitant]
     Active Substance: URSODIOL
  3. CHOLECALCIFEROL [Concomitant]
     Active Substance: CHOLECALCIFEROL
  4. ADEMETIONINE [Suspect]
     Active Substance: ADEMETIONINE

REACTIONS (3)
  - Hypersensitivity [Recovered/Resolved]
  - Localised oedema [Recovered/Resolved]
  - Hyperaemia [Recovered/Resolved]
